FAERS Safety Report 9984698 (Version 1)
Quarter: 2014Q1

REPORT INFORMATION
  Report Type: Spontaneous
  Country: US (occurrence: US)
  Receive Date: 20140307
  Receipt Date: 20140307
  Transmission Date: 20141002
  Serious: No
  Sender: FDA-Public Use
  Company Number: US-GLAXOSMITHKLINE-A1060028A

PATIENT
  Age: 86 Year
  Sex: Female

DRUGS (7)
  1. BREO ELLIPTA [Suspect]
     Indication: ASTHMA
     Dosage: 1PUFF PER DAY
     Route: 055
     Dates: start: 20140204
  2. HYDROXYUREA [Concomitant]
  3. LOVASTATIN [Concomitant]
  4. VALACYCLOVIR [Concomitant]
  5. CARDIZEM [Concomitant]
  6. VITAMINS [Concomitant]
  7. GABAPENTIN [Concomitant]

REACTIONS (2)
  - Drug ineffective [Not Recovered/Not Resolved]
  - Off label use [Unknown]
